FAERS Safety Report 6233272-1 (Version None)
Quarter: 2009Q2

REPORT INFORMATION
  Report Type: 
  Country: None (occurrence: None)
  Receive Date: 20090617
  Receipt Date: 20090608
  Transmission Date: 20091009
  Serious: Yes (Hospitalization)
  Sender: FDA-Public Use
  Company Number: NL-ROCHE-637071

PATIENT
  Sex: Male

DRUGS (3)
  1. CAPECITABINE [Suspect]
     Indication: COLORECTAL CANCER
     Dosage: RECEIVED FIFTH CYCLE ON 27 APRIL 2009 AND SIXTH CYCLE ON 18 MAY 2009.
     Route: 048
     Dates: start: 20090126
  2. BEVACIZUMAB [Suspect]
     Indication: COLORECTAL CANCER
     Dosage: RECEIVED FIFTH CYCLE ON 27 APRIL 2009 AND SIXTH CYCLE ON 18 MAY 2009.
     Route: 042
     Dates: start: 20090126
  3. OXALIPLATIN [Suspect]
     Indication: COLORECTAL CANCER
     Dosage: RECEIVED FIFTH CYCLE ON 27 APRIL 2009 AND SIXTH CYCLE ON 18 MAY 2009.
     Route: 042
     Dates: start: 20090126

REACTIONS (3)
  - ABDOMINAL PAIN [None]
  - DIARRHOEA [None]
  - FAECALOMA [None]
